FAERS Safety Report 14334900 (Version 2)
Quarter: 2019Q2

REPORT INFORMATION
  Report Type: Spontaneous
  Country: None (occurrence: TR)
  Receive Date: 20171229
  Receipt Date: 20190411
  Transmission Date: 20190711
  Serious: Yes (Life-Threatening, Hospitalization)
  Sender: FDA-Public Use
  Company Number: TR-LABORATOIRE HRA PHARMA-2037959

PATIENT
  Age: 41 Year
  Sex: Female
  Weight: 89.4 kg

DRUGS (5)
  1. METOPIRONE [Suspect]
     Active Substance: METYRAPONE
     Indication: CUSHING^S SYNDROME
     Route: 048
     Dates: start: 20170413, end: 20171030
  2. METOPROLOL SUCCINATE. [Concomitant]
     Active Substance: METOPROLOL SUCCINATE
     Dates: start: 20130101
  3. METFORMIN HYDROCHLORIDE. [Concomitant]
     Active Substance: METFORMIN HYDROCHLORIDE
     Dates: start: 20110101
  4. INDOMETACIN [Concomitant]
     Active Substance: INDOMETHACIN
     Dates: start: 20160923
  5. NIFEDIPINE. [Concomitant]
     Active Substance: NIFEDIPINE
     Dates: start: 20110101

REACTIONS (6)
  - Deep vein thrombosis [Recovered/Resolved]
  - Hypotension [Recovered/Resolved]
  - Respiratory arrest [Recovered/Resolved]
  - Cellulitis [Recovered/Resolved]
  - Pulmonary embolism [Recovered/Resolved]
  - Renal failure [Recovered/Resolved]

NARRATIVE: CASE EVENT DATE: 20171031
